FAERS Safety Report 22623898 (Version 1)
Quarter: 2023Q2

REPORT INFORMATION
  Report Type: Spontaneous
  Country: US (occurrence: US)
  Receive Date: 20230621
  Receipt Date: 20230621
  Transmission Date: 20230721
  Serious: No
  Sender: FDA-Public Use
  Company Number: US-PROVENTION BIO, INC.-US-PRAG-23-00029

PATIENT
  Age: 34 Year
  Sex: Female

DRUGS (1)
  1. TZIELD [Suspect]
     Active Substance: TEPLIZUMAB-MZWV
     Indication: Type 1 diabetes mellitus
     Dosage: UNK, SINGLE
     Route: 042
     Dates: start: 20230424

REACTIONS (2)
  - Pain [Recovered/Resolved]
  - Dermatitis contact [Unknown]

NARRATIVE: CASE EVENT DATE: 20230424
